FAERS Safety Report 9413135 (Version 3)
Quarter: 2013Q3

REPORT INFORMATION
  Report Type: Spontaneous
  Country: DO (occurrence: DO)
  Receive Date: 20130722
  Receipt Date: 20130911
  Transmission Date: 20140515
  Serious: Yes (Other)
  Sender: FDA-Public Use
  Company Number: ALCN2013DO000566

PATIENT
  Sex: 0

DRUGS (2)
  1. TOBRADEX [Suspect]
     Indication: HYPERSENSITIVITY
     Dosage: UNK
     Route: 047
     Dates: start: 2011, end: 2013
  2. SOLUTINA F [Suspect]
     Dosage: UNK
     Route: 047
     Dates: start: 2009, end: 2013

REACTIONS (3)
  - Intraocular pressure increased [Not Recovered/Not Resolved]
  - Cataract [Not Recovered/Not Resolved]
  - Vision blurred [Not Recovered/Not Resolved]
